FAERS Safety Report 7474895-1 (Version None)
Quarter: 2011Q2

REPORT INFORMATION
  Report Type: 
  Country: None (occurrence: None)
  Receive Date: 20110512
  Receipt Date: 20110505
  Transmission Date: 20111010
  Serious: Yes (Life-Threatening, Hospitalization, Other)
  Sender: FDA-Public Use
  Company Number: US-CELGENEUS-163-21880-11050833

PATIENT
  Sex: Female
  Weight: 107.6 kg

DRUGS (11)
  1. VERAPAMIL [Concomitant]
     Dosage: 50 MILLIGRAM
     Route: 048
     Dates: start: 20090101
  2. TRAZODONE HCL [Concomitant]
     Dosage: 20 MILLIGRAM
     Route: 048
     Dates: start: 20110401
  3. METOPROLOL SUCCINATE [Concomitant]
     Dosage: 50 MILLIGRAM
     Route: 048
     Dates: start: 20090101
  4. DECADRON [Concomitant]
     Dosage: 20 MILLIGRAM
     Route: 048
     Dates: start: 20110415
  5. LYRICA [Concomitant]
     Dosage: 75 MILLIGRAM
     Route: 048
     Dates: start: 20100101
  6. REVLIMID [Suspect]
     Indication: MULTIPLE MYELOMA
     Dosage: 25 MILLIGRAM
     Route: 048
     Dates: start: 20110415, end: 20110101
  7. MORPHINE SULFATE [Concomitant]
     Dosage: 30 MILLIGRAM
     Route: 048
     Dates: start: 20110201
  8. NEURONTIN [Concomitant]
     Dosage: 900 MILLIGRAM
     Route: 048
     Dates: start: 20101001
  9. OMEPRAZOLE [Concomitant]
     Dosage: 20 MILLIGRAM
     Route: 048
     Dates: start: 20090101
  10. POTASSIUM CHLORIDE [Concomitant]
     Dosage: 20 MILLIGRAM
     Route: 048
     Dates: start: 20090101
  11. COUMADIN [Concomitant]
     Dosage: 5 MILLIGRAM
     Route: 048
     Dates: start: 20110414

REACTIONS (4)
  - GALLBLADDER DISORDER [None]
  - PULMONARY EMBOLISM [None]
  - HYPOTENSION [None]
  - STOMATITIS [None]
